FAERS Safety Report 7963518-0 (Version None)
Quarter: 2011Q4

REPORT INFORMATION
  Report Type: 
  Country: None (occurrence: None)
  Receive Date: 20111205
  Receipt Date: 20111121
  Transmission Date: 20120403
  Serious: Yes (Hospitalization)
  Sender: FDA-Public Use
  Company Number: TPA2011A07886

PATIENT
  Age: 81 Year
  Sex: Female

DRUGS (1)
  1. ACTOS [Suspect]
     Indication: DIABETES MELLITUS

REACTIONS (3)
  - GAIT DISTURBANCE [None]
  - FALL [None]
  - JOINT DISLOCATION [None]
